FAERS Safety Report 18650023 (Version 3)
Quarter: 2021Q1

REPORT INFORMATION
  Report Type: Report from Study
  Country: MX (occurrence: MX)
  Receive Date: 20201222
  Receipt Date: 20210108
  Transmission Date: 20210419
  Serious: Yes (Death, Other)
  Sender: FDA-Public Use
  Company Number: NVSC2020MX336487

PATIENT
  Age: 55 Year
  Sex: Male
  Weight: 104 kg

DRUGS (3)
  1. SANDIMMUN NEORAL [Suspect]
     Active Substance: CYCLOSPORINE
     Indication: PAROXYSMAL NOCTURNAL HAEMOGLOBINURIA
     Dosage: 1 DF, BID (100 MG)
     Route: 048
     Dates: start: 20201128
  2. REVOLADE [Suspect]
     Active Substance: ELTROMBOPAG OLAMINE
     Indication: PAROXYSMAL NOCTURNAL HAEMOGLOBINURIA
     Dosage: 1 DF (50 MG), QD
     Route: 048
     Dates: start: 20201128
  3. SANDIMMUN NEORAL [Suspect]
     Active Substance: CYCLOSPORINE
     Dosage: 1 DF (100 MG), TID (IN THE MORNING, AFTERNOON AND NIGHT)
     Route: 048
     Dates: start: 20201207

REACTIONS (4)
  - Product prescribing error [Unknown]
  - Product use in unapproved indication [Unknown]
  - Paroxysmal nocturnal haemoglobinuria [Fatal]
  - Hypokinesia [Unknown]

NARRATIVE: CASE EVENT DATE: 20201207
